FAERS Safety Report 10009462 (Version 1)
Quarter: 2014Q1

REPORT INFORMATION
  Report Type: Spontaneous
  Country: US (occurrence: US)
  Receive Date: 20140312
  Receipt Date: 20140312
  Transmission Date: 20141002
  Serious: No
  Sender: FDA-Public Use
  Company Number: US-INCYTE CORPORATION-2012IN001549

PATIENT
  Age: 67 Year
  Sex: Male

DRUGS (8)
  1. JAKAFI [Suspect]
     Dosage: 20 MG, BID
  2. ZOLPIDEM [Concomitant]
     Dosage: 5 MG, UNK
  3. BENADRYL [Concomitant]
     Dosage: 25 MG, UNK
  4. SIMVASTATIN [Concomitant]
     Dosage: 10 MG, UNK
  5. ASPIRIN [Concomitant]
     Dosage: 81 MG, UNK
  6. DIAZEPAM [Concomitant]
     Dosage: 2 MG, UNK
  7. OXYCODONE [Concomitant]
     Dosage: 5 MG, UNK
  8. LIDODERM [Concomitant]
     Dosage: 5 %, UNK

REACTIONS (1)
  - Back pain [Unknown]
